FAERS Safety Report 4622418-4 (Version None)
Quarter: 2005Q1

REPORT INFORMATION
  Report Type: 
  Country: None (occurrence: None)
  Receive Date: 20050317
  Receipt Date: 20040322
  Transmission Date: 20050727
  Serious: Yes (Other)
  Sender: FDA-Public Use
  Company Number: PHEH2004US02621

PATIENT
  Age: 23 Year
  Sex: Female

DRUGS (3)
  1. TRILEPTAL [Suspect]
  2. LAMICTAL [Concomitant]
  3. CLOZAPINE [Concomitant]

REACTIONS (2)
  - CONFUSIONAL STATE [None]
  - HYPONATRAEMIA [None]
